FAERS Safety Report 21834622 (Version 2)
Quarter: 2023Q4

REPORT INFORMATION
  Report Type: Spontaneous
  Country: US (occurrence: None)
  Receive Date: 20230108
  Receipt Date: 20231219
  Transmission Date: 20240109
  Serious: No
  Sender: FDA-Public Use
  Company Number: US-ROCHE-3156407

PATIENT
  Sex: Male

DRUGS (2)
  1. HEMLIBRA [Suspect]
     Active Substance: EMICIZUMAB-KXWH
     Indication: Factor VIII deficiency
     Dosage: STRENGTH: 150 MG/ML?SDV (SINGLE DOSE VIAL)
     Route: 058
     Dates: start: 20221007
  2. HEMLIBRA [Suspect]
     Active Substance: EMICIZUMAB-KXWH
     Dosage: STRENGTH: 150 MG/ML?SDV (SINGLE DOSE VIAL)
     Route: 058
     Dates: start: 20221007

REACTIONS (6)
  - Haemorrhage [Unknown]
  - Contusion [Unknown]
  - Mass [Unknown]
  - Limb injury [Unknown]
  - Tendon rupture [Unknown]
  - Haemorrhage [Unknown]
